FAERS Safety Report 17845897 (Version 2)
Quarter: 2020Q3

REPORT INFORMATION
  Report Type: Spontaneous
  Country: BR (occurrence: BR)
  Receive Date: 20200601
  Receipt Date: 20200831
  Transmission Date: 20201103
  Serious: Yes (Hospitalization)
  Sender: FDA-Public Use
  Company Number: BR-GLAXOSMITHKLINE-BR2020AMR090139

PATIENT
  Age: 30 Year
  Sex: Female
  Weight: 82 kg

DRUGS (7)
  1. ZINNAT [Suspect]
     Active Substance: CEFUROXIME
     Indication: SINUS OPERATION
  2. AMOXICILLIN. [Suspect]
     Active Substance: AMOXICILLIN
     Indication: SECRETION DISCHARGE
     Dosage: 1 DF, BID,875MG
  3. ZINNAT [Suspect]
     Active Substance: CEFUROXIME
     Indication: SECRETION DISCHARGE
  4. AMOXICILLIN. [Suspect]
     Active Substance: AMOXICILLIN
     Indication: SINUS OPERATION
  5. PUTAN T4 [Concomitant]
     Indication: PRODUCT USED FOR UNKNOWN INDICATION
     Dosage: UNK
  6. ZINNAT [Suspect]
     Active Substance: CEFUROXIME
     Indication: NASAL SEPTAL OPERATION
     Dosage: 1 DF, BID,500MG
     Dates: start: 20200523, end: 20200527
  7. AMOXICILLIN. [Suspect]
     Active Substance: AMOXICILLIN
     Indication: NASAL SEPTAL OPERATION

REACTIONS (12)
  - Condition aggravated [Recovering/Resolving]
  - Swelling face [Not Recovered/Not Resolved]
  - Drug ineffective [Unknown]
  - Dyspnoea [Recovering/Resolving]
  - Peripheral swelling [Not Recovered/Not Resolved]
  - Swelling [Not Recovered/Not Resolved]
  - Throat tightness [Recovering/Resolving]
  - Weight increased [Recovering/Resolving]
  - Nasal mucosal erosion [Recovering/Resolving]
  - Abdominal distension [Not Recovered/Not Resolved]
  - Tachycardia [Recovering/Resolving]
  - Drug hypersensitivity [Recovering/Resolving]

NARRATIVE: CASE EVENT DATE: 202005
